FAERS Safety Report 4485142-7 (Version None)
Quarter: 2004Q4

REPORT INFORMATION
  Report Type: 
  Country: None (occurrence: None)
  Receive Date: 20041026
  Receipt Date: 20031203
  Transmission Date: 20050328
  Serious: No
  Sender: FDA-Public Use
  Company Number: US-BRISTOL-MYERS SQUIBB COMPANY-12449385

PATIENT
  Age: 53 Year
  Sex: Female
  Weight: 102 kg

DRUGS (5)
  1. GLUCOPHAGE XR [Suspect]
     Indication: DIABETES MELLITUS
     Route: 048
     Dates: start: 20030414, end: 20031217
  2. LIPITOR [Suspect]
  3. ALTACE [Concomitant]
  4. LEVOTHYROID [Concomitant]
  5. VITAMIN E [Concomitant]

REACTIONS (1)
  - ALOPECIA [None]
